FAERS Safety Report 12783756 (Version 1)
Quarter: 2016Q3

REPORT INFORMATION
  Report Type: Spontaneous
  Country: GB (occurrence: GB)
  Receive Date: 20160927
  Receipt Date: 20160927
  Transmission Date: 20161109
  Serious: Yes (Other)
  Sender: FDA-Public Use
  Company Number: GB-BAYER-2016-187113

PATIENT
  Age: 20 Year
  Sex: Female
  Weight: 55 kg

DRUGS (2)
  1. LEVOTHYROXINE. [Concomitant]
     Active Substance: LEVOTHYROXINE
     Dosage: UNK
  2. CIPROFLOXACIN MONOHYDROCHLORIDE [Suspect]
     Active Substance: CIPROFLOXACIN
     Indication: CHANGE OF BOWEL HABIT
     Dosage: 500 MG, UNK
     Route: 048

REACTIONS (1)
  - Parkinsonian rest tremor [Recovered/Resolved]
